FAERS Safety Report 4263927-X (Version None)
Quarter: 2004Q1

REPORT INFORMATION
  Report Type: 
  Country: None (occurrence: None)
  Receive Date: 20040102
  Receipt Date: 20031209
  Transmission Date: 20041129
  Serious: Yes (Other)
  Sender: FDA-Public Use
  Company Number: B0317710A

PATIENT
  Age: 58 Year
  Sex: Female

DRUGS (7)
  1. AVANDIA [Suspect]
     Indication: DIABETES MELLITUS NON-INSULIN-DEPENDENT
     Dosage: ORAL
     Route: 048
  2. GLYBURIDE [Concomitant]
  3. METFORMIN HCL [Concomitant]
  4. ENALAPRIL [Concomitant]
  5. AMLODIPINE BESYLATE [Concomitant]
  6. ASPIRIN [Concomitant]
  7. VITAMIN E [Concomitant]

REACTIONS (6)
  - ACCELERATED HYPERTENSION [None]
  - DIZZINESS [None]
  - FATIGUE [None]
  - HEADACHE [None]
  - NECK PAIN [None]
  - RESTLESSNESS [None]
